FAERS Safety Report 7717604-0 (Version None)
Quarter: 2011Q3

REPORT INFORMATION
  Report Type: 
  Country: None (occurrence: None)
  Receive Date: 20110830
  Receipt Date: 20110824
  Transmission Date: 20111222
  Serious: Yes (Hospitalization, Other)
  Sender: FDA-Public Use
  Company Number: FR-BRISTOL-MYERS SQUIBB COMPANY-15474752

PATIENT
  Age: 21 Year
  Sex: Male

DRUGS (7)
  1. LEVOTHYROXINE SODIUM [Suspect]
     Route: 048
     Dates: start: 20101116
  2. HYDROCORTISONE [Concomitant]
     Indication: ADRENAL INSUFFICIENCY
     Route: 048
  3. LYSODREN [Suspect]
     Dosage: 2DF:2 TABLETS 6OCT10-27DEC10(82D) ON 28DEC10 DEC FROM 4 TO 2 TABS, STOPPED
     Route: 048
     Dates: start: 20101006
  4. METYRAPONE [Suspect]
     Dosage: 1DF:6DF(16-17NOV10)6TAB(1D) 9DF:18NOV-13DEC10(9TABS) RESTA13MAY11(12TAB/D) INCRE 16TABS/D,16MAY11
     Route: 048
     Dates: start: 20101116, end: 20101213
  5. ALDACTONE [Suspect]
     Indication: PROPHYLAXIS
     Dosage: RESTARTED ON UNSPECIFIED DATE.
     Route: 048
     Dates: start: 20101116
  6. ALDACTONE [Suspect]
     Indication: HYPERTENSION
     Dosage: RESTARTED ON UNSPECIFIED DATE.
     Route: 048
     Dates: start: 20101116
  7. HYDROCORTISONE [Concomitant]
     Indication: PROPHYLAXIS
     Route: 048

REACTIONS (1)
  - HEPATITIS ACUTE [None]
